FAERS Safety Report 5642729-3 (Version None)
Quarter: 2008Q1

REPORT INFORMATION
  Report Type: 
  Country: None (occurrence: None)
  Receive Date: 20080227
  Receipt Date: 20080227
  Transmission Date: 20080703
  Serious: Yes (Hospitalization)
  Sender: FDA-Public Use
  Company Number: None

PATIENT
  Sex: Female
  Weight: 86.1834 kg

DRUGS (7)
  1. BACTRIM DS [Suspect]
     Indication: URINARY TRACT INFECTION
     Dosage: 1 TABLET PO
     Route: 048
     Dates: start: 20070620
  2. ACCUPRIL [Concomitant]
  3. PROTONIX [Concomitant]
  4. FOLIC ACID [Concomitant]
  5. ZOLOFT [Concomitant]
  6. VYTORIN [Concomitant]
  7. ASPIRIN [Concomitant]

REACTIONS (3)
  - ERYTHEMA [None]
  - PRURITUS [None]
  - URTICARIA [None]
